FAERS Safety Report 5653338-4 (Version None)
Quarter: 2008Q1

REPORT INFORMATION
  Report Type: 
  Country: None (occurrence: None)
  Receive Date: 20080306
  Receipt Date: 20080229
  Transmission Date: 20080703
  Serious: Yes (Other)
  Sender: FDA-Public Use
  Company Number: US-MERCK-0802USA06355

PATIENT
  Sex: Male

DRUGS (3)
  1. VYTORIN [Suspect]
     Route: 048
  2. MEDROL [Suspect]
     Indication: BLINDNESS UNILATERAL
     Route: 065
  3. [THERAPY UNSPECIFIED] [Suspect]
     Route: 065

REACTIONS (5)
  - ANXIETY [None]
  - ATRIAL FIBRILLATION [None]
  - BLINDNESS UNILATERAL [None]
  - DEPRESSION [None]
  - RED BLOOD CELL SEDIMENTATION RATE INCREASED [None]
